FAERS Safety Report 15766847 (Version 1)
Quarter: 2018Q4

REPORT INFORMATION
  Report Type: Report from Study
  Country: US (occurrence: US)
  Receive Date: 20181227
  Receipt Date: 20181227
  Transmission Date: 20190205
  Serious: Yes (Other)
  Sender: FDA-Public Use
  Company Number: US-OTSUKA-2018_039803

PATIENT

DRUGS (2)
  1. TOLVAPTAN [Suspect]
     Active Substance: TOLVAPTAN
     Dosage: 15 MG, UNK
     Route: 048
     Dates: start: 20181129
  2. TOLVAPTAN [Suspect]
     Active Substance: TOLVAPTAN
     Indication: PRODUCT USED FOR UNKNOWN INDICATION
     Dosage: 45 MG, UNK
     Route: 048
     Dates: start: 20181129

REACTIONS (3)
  - Contusion [Unknown]
  - Dyspnoea [Unknown]
  - Tremor [Unknown]

NARRATIVE: CASE EVENT DATE: 20181203
